FAERS Safety Report 12578892 (Version 2)
Quarter: 2016Q3

REPORT INFORMATION
  Report Type: Spontaneous
  Country: US (occurrence: US)
  Receive Date: 20160721
  Receipt Date: 20160902
  Transmission Date: 20161109
  Serious: Yes (Hospitalization)
  Sender: FDA-Public Use
  Company Number: US-PFIZER INC-2016340672

PATIENT
  Age: 56 Year
  Sex: Female

DRUGS (8)
  1. PRISTIQ EXTENDED-RELEASE [Suspect]
     Active Substance: DESVENLAFAXINE SUCCINATE
     Indication: ANXIETY
  2. ABILIFY [Suspect]
     Active Substance: ARIPIPRAZOLE
     Indication: ANXIETY
  3. WELLBUTRIN [Suspect]
     Active Substance: BUPROPION HYDROCHLORIDE
     Indication: DEPRESSION
     Dosage: 300 MG, UNK
  4. ABILIFY [Suspect]
     Active Substance: ARIPIPRAZOLE
     Indication: DEPRESSION
     Dosage: 2 MG, UNK
  5. PRISTIQ EXTENDED-RELEASE [Suspect]
     Active Substance: DESVENLAFAXINE SUCCINATE
     Indication: DEPRESSION
     Dosage: 100 MG, UNK
  6. XANAX [Suspect]
     Active Substance: ALPRAZOLAM
     Indication: ANXIETY
  7. XANAX [Suspect]
     Active Substance: ALPRAZOLAM
     Indication: DEPRESSION
     Dosage: 1 MG, 3X/DAY
  8. WELLBUTRIN [Suspect]
     Active Substance: BUPROPION HYDROCHLORIDE
     Indication: ANXIETY

REACTIONS (3)
  - Nervousness [Not Recovered/Not Resolved]
  - Panic attack [Not Recovered/Not Resolved]
  - Social anxiety disorder [Not Recovered/Not Resolved]
